FAERS Safety Report 20369775 (Version 1)
Quarter: 2022Q1

REPORT INFORMATION
  Report Type: Spontaneous
  Country: US (occurrence: US)
  Receive Date: 20220124
  Receipt Date: 20220124
  Transmission Date: 20220423
  Serious: No
  Sender: FDA-Public Use
  Company Number: US-THERATECHNOLOGIES INC.-2022-THE-IBA-000013

PATIENT
  Age: 77 Year
  Sex: Male

DRUGS (1)
  1. TROGARZO [Suspect]
     Active Substance: IBALIZUMAB-UIYK
     Indication: Product used for unknown indication
     Route: 042

REACTIONS (2)
  - T-lymphocyte count decreased [Unknown]
  - Viral load increased [Unknown]

NARRATIVE: CASE EVENT DATE: 20211101
